FAERS Safety Report 7900302-8 (Version None)
Quarter: 2011Q4

REPORT INFORMATION
  Report Type: 
  Country: None (occurrence: None)
  Receive Date: 20111108
  Receipt Date: 20100107
  Transmission Date: 20120403
  Serious: No
  Sender: FDA-Public Use
  Company Number: US-BAYER-201010832NA

PATIENT
  Age: 42 Year
  Sex: Female

DRUGS (1)
  1. CLIMARA [Suspect]
     Indication: PRODUCT USED FOR UNKNOWN INDICATION
     Dosage: THE PATCHES OF CURRENT BOX WAS NOT STICKING WELL - ADMINISTRATED ON ABDOMEN AND HIP AREAS
     Dates: start: 20090101

REACTIONS (2)
  - APPLICATION SITE DRYNESS [None]
  - APPLICATION SITE RASH [None]
